FAERS Safety Report 13306083 (Version 1)
Quarter: 2017Q1

REPORT INFORMATION
  Report Type: Spontaneous
  Country: DE (occurrence: DE)
  Receive Date: 20170308
  Receipt Date: 20170308
  Transmission Date: 20170428
  Serious: Yes (Hospitalization, Other)
  Sender: FDA-Public Use
  Company Number: DE-AUROBINDO-AUR-APL-2017-30831

PATIENT
  Sex: Female
  Weight: 120 kg

DRUGS (2)
  1. RISPERIDONE 3MG [Suspect]
     Active Substance: RISPERIDONE
     Indication: SCHIZOPHRENIA
     Dosage: 3 MG, DAILY
     Route: 064
     Dates: start: 20150510, end: 20160221
  2. PAROXETINE. [Concomitant]
     Active Substance: PAROXETINE
     Indication: SCHIZOPHRENIA
     Dosage: 20 MG, DAILY
     Route: 064
     Dates: start: 20150510, end: 20160221

REACTIONS (3)
  - Neonatal infection [Unknown]
  - Foetal exposure during pregnancy [Unknown]
  - Respiratory depression [Unknown]
